FAERS Safety Report 7482881-0 (Version None)
Quarter: 2011Q2

REPORT INFORMATION
  Report Type: 
  Country: None (occurrence: None)
  Receive Date: 20110516
  Receipt Date: 20110430
  Transmission Date: 20111010
  Serious: No
  Sender: FDA-Public Use
  Company Number: US-B.I. PHARMACEUTICALS,INC./RIDGEFIELD-2011-BP-12183BP

PATIENT
  Sex: Female

DRUGS (2)
  1. MULTAQ [Concomitant]
     Dates: start: 20110301, end: 20110429
  2. PRADAXA [Suspect]
     Indication: ATRIAL FIBRILLATION
     Dosage: 300 MG
     Route: 048
     Dates: start: 20110406

REACTIONS (5)
  - PARAESTHESIA [None]
  - RASH PRURITIC [None]
  - URTICARIA [None]
  - BURNING SENSATION [None]
  - PRURITUS [None]
